FAERS Safety Report 5275655-2 (Version None)
Quarter: 2007Q1

REPORT INFORMATION
  Report Type: 
  Country: None (occurrence: None)
  Receive Date: 20070326
  Receipt Date: 20070321
  Transmission Date: 20070707
  Serious: Yes (Other)
  Sender: FDA-Public Use
  Company Number: US-GLAXOSMITHKLINE-A0643873A

PATIENT
  Age: 54 Year
  Sex: Male

DRUGS (2)
  1. NICODERM CQ [Suspect]
     Route: 062
     Dates: start: 20070214, end: 20070305
  2. CHANTIX [Concomitant]

REACTIONS (8)
  - CHEMICAL POISONING [None]
  - HEART RATE INCREASED [None]
  - INSOMNIA [None]
  - NAUSEA [None]
  - NIGHTMARE [None]
  - SKIN LACERATION [None]
  - SYNCOPE [None]
  - TREMOR [None]
